FAERS Safety Report 5507727-9 (Version None)
Quarter: 2007Q4

REPORT INFORMATION
  Report Type: 
  Country: None (occurrence: None)
  Receive Date: 20071105
  Receipt Date: 20071105
  Transmission Date: 20080405
  Serious: Yes (Hospitalization)
  Sender: FDA-Public Use
  Company Number: None

PATIENT
  Sex: Male
  Weight: 70.5 kg

DRUGS (1)
  1. CLOMIPRAMINE HCL [Suspect]
     Indication: ABNORMAL BEHAVIOUR

REACTIONS (8)
  - ANOREXIA [None]
  - CONSTIPATION [None]
  - DEHYDRATION [None]
  - HYPERHIDROSIS [None]
  - ORAL INTAKE REDUCED [None]
  - PALPITATIONS [None]
  - URINE OUTPUT DECREASED [None]
  - WEIGHT DECREASED [None]
